FAERS Safety Report 7747511-9 (Version None)
Quarter: 2011Q3

REPORT INFORMATION
  Report Type: 
  Country: None (occurrence: None)
  Receive Date: 20110909
  Receipt Date: 20110829
  Transmission Date: 20111222
  Serious: Yes (Other)
  Sender: FDA-Public Use
  Company Number: 1000023211

PATIENT
  Age: 34 Year
  Sex: Male

DRUGS (1)
  1. LEXAPRO [Suspect]
     Indication: INSOMNIA
     Dosage: 10 MG (10 MG, 1 IN 1 D)
     Dates: start: 20060923, end: 20060924

REACTIONS (36)
  - BURNING SENSATION [None]
  - DEREALISATION [None]
  - FEELING ABNORMAL [None]
  - TREMOR [None]
  - HALLUCINATION [None]
  - NAUSEA [None]
  - BALANCE DISORDER [None]
  - NIGHT BLINDNESS [None]
  - HYPERSENSITIVITY [None]
  - INFLUENZA LIKE ILLNESS [None]
  - TINNITUS [None]
  - VIOLENCE-RELATED SYMPTOM [None]
  - VISUAL IMPAIRMENT [None]
  - INSOMNIA [None]
  - AKATHISIA [None]
  - HEADACHE [None]
  - VITAMIN A [None]
  - ANXIETY [None]
  - EMOTIONAL DISORDER [None]
  - PARAESTHESIA [None]
  - FEAR [None]
  - DEPRESSION [None]
  - INFLUENZA [None]
  - BRAIN INJURY [None]
  - ADVERSE EVENT [None]
  - MEMORY IMPAIRMENT [None]
  - SEROTONIN SYNDROME [None]
  - MANIA [None]
  - PANIC ATTACK [None]
  - FOOD INTOLERANCE [None]
  - SCREAMING [None]
  - UNEVALUABLE EVENT [None]
  - TACHYPHRENIA [None]
  - DIZZINESS [None]
  - NIGHTMARE [None]
  - HALLUCINATION, VISUAL [None]
